FAERS Safety Report 6721644-8 (Version None)
Quarter: 2010Q2

REPORT INFORMATION
  Report Type: 
  Country: None (occurrence: None)
  Receive Date: 20100512
  Receipt Date: 20100505
  Transmission Date: 20101027
  Serious: Yes (Other)
  Sender: FDA-Public Use
  Company Number: PHHO2009US02519

PATIENT
  Sex: Male
  Weight: 94.603 kg

DRUGS (3)
  1. CERTICAN [Suspect]
     Indication: RENAL TRANSPLANT
     Dosage: 2.25 MG, BID
     Route: 048
     Dates: start: 20020823
  2. CERTICAN [Suspect]
     Dosage: 2.25/2.0 MG
     Route: 048
     Dates: start: 20030912
  3. CELLCEPT [Concomitant]
     Indication: RENAL TRANSPLANT
     Dosage: 1000 MG, BID
     Route: 048
     Dates: start: 20030912

REACTIONS (3)
  - BASAL CELL CARCINOMA [None]
  - SKIN LESION EXCISION [None]
  - SKIN ULCER [None]
